FAERS Safety Report 18899213 (Version 1)
Quarter: 2021Q1

REPORT INFORMATION
  Report Type: Spontaneous
  Country: JP (occurrence: JP)
  Receive Date: 20210216
  Receipt Date: 20210216
  Transmission Date: 20210420
  Serious: Yes (Hospitalization, Other)
  Sender: FDA-Public Use
  Company Number: JP-BRISTOL-MYERS SQUIBB COMPANY-BMS-2019-126916

PATIENT
  Age: 70 Year
  Sex: Male
  Weight: 57.5 kg

DRUGS (3)
  1. YERVOY [Suspect]
     Active Substance: IPILIMUMAB
     Indication: MALIGNANT MELANOMA
     Dosage: 210 MILLIGRAM
     Route: 041
     Dates: start: 20190814, end: 20191023
  2. OPDIVO [Suspect]
     Active Substance: NIVOLUMAB
     Indication: MALIGNANT MELANOMA
     Dosage: 80 MILLIGRAM
     Route: 041
     Dates: start: 20190814, end: 20191023
  3. OPDIVO [Suspect]
     Active Substance: NIVOLUMAB
     Dosage: 240 MILLIGRAM
     Route: 041
     Dates: start: 20191120, end: 20200501

REACTIONS (10)
  - Adrenocortical insufficiency acute [Recovered/Resolved]
  - Decreased appetite [Recovering/Resolving]
  - Type 2 diabetes mellitus [Unknown]
  - Hypothalamo-pituitary disorder [Not Recovered/Not Resolved]
  - Euthyroid sick syndrome [Unknown]
  - Thyroid function test abnormal [Unknown]
  - Malaise [Recovering/Resolving]
  - Hypopituitarism [Unknown]
  - Hyponatraemia [Recovering/Resolving]
  - Pyrexia [Recovered/Resolved]

NARRATIVE: CASE EVENT DATE: 20190830
